FAERS Safety Report 13761409 (Version 2)
Quarter: 2017Q4

REPORT INFORMATION
  Report Type: Spontaneous
  Country: US (occurrence: US)
  Receive Date: 20170717
  Receipt Date: 20171017
  Transmission Date: 20180320
  Serious: No
  Sender: FDA-Public Use
  Company Number: US-BIOMARINAP-US-2017-114695

PATIENT
  Age: 13 Year
  Sex: Female
  Weight: 24.6 kg

DRUGS (2)
  1. NORMAL SALINE [Concomitant]
     Active Substance: SODIUM CHLORIDE
     Indication: CATHETER MANAGEMENT
     Dosage: UNK
     Dates: start: 20170712
  2. VIMIZIM [Suspect]
     Active Substance: ELOSULFASE ALFA
     Indication: MUCOPOLYSACCHARIDOSIS IV
     Dosage: 55 MG, QW
     Route: 042
     Dates: start: 20170401

REACTIONS (4)
  - Drug dose omission [Unknown]
  - Catheter site pain [Unknown]
  - Catheter site pain [Unknown]
  - Crying [Unknown]

NARRATIVE: CASE EVENT DATE: 20170712
